FAERS Safety Report 6271741 (Version 5)
Quarter: 2012Q4

REPORT INFORMATION
  Report Type: 
  Country: US (occurrence: US)
  Receive Date: 20070327
  Receipt Date: 20120917
  Transmission Date: 20130627
  Serious: Yes (Hospitalization, Other)
  Sender: FDA-Public Use
  Company Number: PHEH2007US03187

PATIENT
  Age: 49 None
  Sex: Female

DRUGS (6)
  1. ESTRADERM [Suspect]
     Indication: HORMONE REPLACEMENT THERAPY
     Dosage: 0.5 mg, UNK
     Route: 062
     Dates: start: 199404, end: 199706
  2. ESTRADERM [Suspect]
     Dosage: 0.1 mg, UNK
     Route: 062
     Dates: start: 199708, end: 200002
  3. VIVELLE [Suspect]
     Indication: HORMONE REPLACEMENT THERAPY
     Dosage: 0.1 mg, UNK
     Route: 062
     Dates: start: 199710, end: 199712
  4. PROVERA [Suspect]
     Indication: HORMONE REPLACEMENT THERAPY
     Dosage: 2.5 mg, UNK
     Route: 048
     Dates: start: 199403, end: 199408
  5. PREMARIN [Suspect]
     Indication: HORMONE REPLACEMENT THERAPY
  6. MPA [Suspect]
     Indication: HORMONE REPLACEMENT THERAPY
     Dosage: 2.5 mg, UNK
     Route: 048
     Dates: start: 199409, end: 20000216

REACTIONS (66)
  - Invasive ductal breast carcinoma [Unknown]
  - Breast mass [Unknown]
  - Lymphoedema [Unknown]
  - Fibrocystic breast disease [Unknown]
  - Lymphadenopathy [Unknown]
  - Hypertension [Unknown]
  - Thrombosis [Unknown]
  - Cerebrovascular accident [Unknown]
  - Hypoaesthesia [Unknown]
  - Dysarthria [Unknown]
  - Aphasia [Unknown]
  - Gait disturbance [Unknown]
  - Motor dysfunction [Unknown]
  - Adenomyosis [Recovered/Resolved]
  - Uterine haemorrhage [Recovered/Resolved]
  - Uterine leiomyoma [Unknown]
  - Fibromyalgia [Unknown]
  - Arthralgia [Unknown]
  - Pain in extremity [Unknown]
  - Type 2 diabetes mellitus [Unknown]
  - Diabetic neuropathy [Unknown]
  - Peripheral sensory neuropathy [Unknown]
  - Neuropathy peripheral [Unknown]
  - Hypoglycaemia [Unknown]
  - Depression [Not Recovered/Not Resolved]
  - Anxiety [Not Recovered/Not Resolved]
  - Transient ischaemic attack [Unknown]
  - VIIth nerve paralysis [Unknown]
  - Amnesia [Unknown]
  - Cerebrovascular disorder [Unknown]
  - Cognitive disorder [Unknown]
  - Nervous system disorder [Unknown]
  - Sleep apnoea syndrome [Unknown]
  - Hypoxia [Unknown]
  - Pneumonia [Unknown]
  - Asthma [Unknown]
  - Irritable bowel syndrome [Unknown]
  - Gastric polyps [Unknown]
  - Postmenopausal haemorrhage [Unknown]
  - Obesity [Unknown]
  - Migraine [Unknown]
  - Lipids increased [Unknown]
  - Osteoarthritis [Unknown]
  - Non-Hodgkin^s lymphoma [Unknown]
  - Staphylococcal infection [Unknown]
  - Mastitis [Unknown]
  - Urinary tract infection [Unknown]
  - Dysuria [Unknown]
  - Cystitis [Unknown]
  - Flank pain [Unknown]
  - Osteomyelitis [Unknown]
  - Oedema peripheral [Unknown]
  - Gastrooesophageal reflux disease [Unknown]
  - Alopecia [Unknown]
  - Diverticulum intestinal [Unknown]
  - Abdominal pain lower [Unknown]
  - Diarrhoea [Unknown]
  - Upper respiratory tract infection [Unknown]
  - Vision blurred [Unknown]
  - Osteoarthritis [None]
  - Lymphoedema [None]
  - Fall [None]
  - Progesterone receptor assay positive [None]
  - Oestrogen receptor assay positive [None]
  - Hypoglycaemia [None]
  - Umbilical hernia [None]
